FAERS Safety Report 4352229-9 (Version None)
Quarter: 2004Q2

REPORT INFORMATION
  Report Type: 
  Country: None (occurrence: None)
  Receive Date: 20040428
  Receipt Date: 20040408
  Transmission Date: 20050107
  Serious: Yes (Other)
  Sender: FDA-Public Use
  Company Number: GBS040414745

PATIENT
  Age: 34 Year
  Sex: Male

DRUGS (2)
  1. XIGRIS [Suspect]
     Indication: MULTI-ORGAN FAILURE
     Dates: start: 20040404, end: 20040407
  2. XIGRIS [Suspect]
     Indication: SEPSIS
     Dates: start: 20040404, end: 20040407

REACTIONS (1)
  - PLATELET COUNT DECREASED [None]
